FAERS Safety Report 7392062-7 (Version None)
Quarter: 2011Q1

REPORT INFORMATION
  Report Type: 
  Country: None (occurrence: None)
  Receive Date: 20110301
  Receipt Date: 20101102
  Transmission Date: 20110831
  Serious: No
  Sender: FDA-Public Use
  Company Number: ALA_01551_2011

PATIENT
  Sex: Male

DRUGS (1)
  1. REGLAN [Suspect]
     Indication: PRODUCT USED FOR UNKNOWN INDICATION
     Dosage: 10 MG ORAL
     Route: 048
     Dates: start: 20081101, end: 20100401

REACTIONS (1)
  - TREMOR [None]
